FAERS Safety Report 22285903 (Version 1)
Quarter: 2023Q2

REPORT INFORMATION
  Report Type: Spontaneous
  Country: GB (occurrence: GB)
  Receive Date: 20230505
  Receipt Date: 20230505
  Transmission Date: 20230722
  Serious: Yes (Other)
  Sender: FDA-Public Use
  Company Number: None

PATIENT
  Age: 4 Year
  Sex: Male
  Weight: 6.1 kg

DRUGS (5)
  1. MONTELUKAST [Suspect]
     Active Substance: MONTELUKAST SODIUM
     Indication: Asthma
     Dosage: AT NIGHT
     Dates: start: 20230324
  2. BECLOMETHASONE DIPROPIONATE [Concomitant]
     Active Substance: BECLOMETHASONE DIPROPIONATE
     Indication: Product used for unknown indication
     Dosage: 50-100 MICROGRAMS
  3. PARAFFIN\WAX, EMULSIFYING [Concomitant]
     Active Substance: PARAFFIN\WAX, EMULSIFYING
     Indication: Wheezing
     Dosage: APPLY TO SKIN OR USE AS A SOAP SUBSTITUTE
     Dates: start: 20230322
  4. PREDNISOLONE [Concomitant]
     Active Substance: PREDNISOLONE
     Indication: Wheezing
     Dosage: 4 AS STAT DOSE
     Dates: start: 20230322
  5. ALBUTEROL [Concomitant]
     Active Substance: ALBUTEROL
     Indication: Product used for unknown indication
     Route: 055

REACTIONS (3)
  - Speech disorder [Unknown]
  - Slow speech [Unknown]
  - Irritability [Unknown]
